FAERS Safety Report 21008901 (Version 2)
Quarter: 2022Q2

REPORT INFORMATION
  Report Type: Other
  Country: JP (occurrence: JP)
  Receive Date: 20220627
  Receipt Date: 20220629
  Transmission Date: 20220721
  Serious: Yes (Other)
  Sender: FDA-Public Use
  Company Number: JP-CHUGAI-2022024264

PATIENT
  Age: 47 Year
  Sex: Female

DRUGS (5)
  1. KADCYLA [Suspect]
     Active Substance: ADO-TRASTUZUMAB EMTANSINE
     Indication: Breast cancer
     Dosage: UNK
     Route: 042
  2. AVASTIN [Suspect]
     Active Substance: BEVACIZUMAB
     Indication: Breast cancer
     Dosage: UNK
     Route: 042
  3. XELODA [Suspect]
     Active Substance: CAPECITABINE
     Indication: Breast cancer
     Dosage: UNK
     Route: 048
  4. PACLITAXEL [Concomitant]
     Active Substance: PACLITAXEL
     Indication: Breast cancer
     Dosage: UNK
     Route: 041
  5. LAPATINIB DITOSYLATE [Concomitant]
     Active Substance: LAPATINIB DITOSYLATE
     Indication: Breast cancer
     Dosage: UNK
     Route: 041

REACTIONS (2)
  - Portal hypertension [Unknown]
  - Nodular regenerative hyperplasia [Unknown]
